FAERS Safety Report 6940487-3 (Version None)
Quarter: 2010Q3

REPORT INFORMATION
  Report Type: 
  Country: None (occurrence: None)
  Receive Date: 20100820
  Receipt Date: 20100804
  Transmission Date: 20110219
  Serious: Yes (Hospitalization, Disabling, Other)
  Sender: FDA-Public Use
  Company Number: APP201000630

PATIENT
  Sex: Female

DRUGS (14)
  1. HEPARIN SODIUM INJECTION [Suspect]
     Indication: CATHETERISATION CARDIAC
     Dosage: PER 10 ML, INTRAVENOUS BOLUS
     Route: 040
     Dates: start: 20080708, end: 20080718
  2. HEPARIN SODIUM INJECTION [Suspect]
     Indication: VASCULAR GRAFT
     Dosage: PER 10 ML, INTRAVENOUS BOLUS
     Route: 040
     Dates: start: 20080708, end: 20080718
  3. HEPARIN SODIUM INJECTION [Suspect]
     Indication: CATHETERISATION CARDIAC
     Dosage: PER 10 ML, INTRAVENOUS BOLUS
     Route: 040
     Dates: start: 20080708, end: 20080718
  4. HEPARIN SODIUM INJECTION [Suspect]
     Indication: VASCULAR GRAFT
     Dosage: PER 10 ML, INTRAVENOUS BOLUS
     Route: 040
     Dates: start: 20080708, end: 20080718
  5. HEPARIN SODIUM INJECTION [Suspect]
     Indication: CATHETERISATION CARDIAC
     Dosage: PER 10 ML, INTRAVENOUS BOLUS
     Route: 040
     Dates: start: 20080708, end: 20080718
  6. HEPARIN SODIUM INJECTION [Suspect]
     Indication: VASCULAR GRAFT
     Dosage: PER 10 ML, INTRAVENOUS BOLUS
     Route: 040
     Dates: start: 20080708, end: 20080718
  7. HEPARIN [Suspect]
     Indication: CATHETERISATION CARDIAC
     Dosage: IN 500 ML NORMAL SALINE, IN 0.5 ML SYRINGE, IN 250 ML D5W
     Dates: start: 20080708, end: 20080718
  8. HEPARIN [Suspect]
     Indication: VASCULAR GRAFT
     Dosage: IN 500 ML NORMAL SALINE, IN 0.5 ML SYRINGE, IN 250 ML D5W
     Dates: start: 20080708, end: 20080718
  9. HEPARIN [Suspect]
     Indication: CATHETERISATION CARDIAC
     Dosage: IN 500 ML NORMAL SALINE, IN 0.5 ML SYRINGE, IN 250 ML D5W
     Dates: start: 20080708, end: 20080718
  10. HEPARIN [Suspect]
     Indication: VASCULAR GRAFT
     Dosage: IN 500 ML NORMAL SALINE, IN 0.5 ML SYRINGE, IN 250 ML D5W
     Dates: start: 20080708, end: 20080718
  11. HEPARIN [Suspect]
     Indication: CATHETERISATION CARDIAC
     Dosage: IN 500 ML NORMAL SALINE, IN 0.5 ML SYRINGE, IN 250 ML D5W
     Dates: start: 20080708, end: 20080718
  12. HEPARIN [Suspect]
     Indication: VASCULAR GRAFT
     Dosage: IN 500 ML NORMAL SALINE, IN 0.5 ML SYRINGE, IN 250 ML D5W
     Dates: start: 20080708, end: 20080718
  13. LOVENOX [Suspect]
     Indication: CATHETERISATION CARDIAC
     Dosage: 30 MG/0.3 ML
     Dates: start: 20080708, end: 20080718
  14. LOVENOX [Suspect]
     Indication: VASCULAR GRAFT
     Dosage: 30 MG/0.3 ML
     Dates: start: 20080708, end: 20080718

REACTIONS (13)
  - CEREBROVASCULAR ACCIDENT [None]
  - COGNITIVE DISORDER [None]
  - DECUBITUS ULCER [None]
  - HEPARIN-INDUCED THROMBOCYTOPENIA [None]
  - IMPAIRED GASTRIC EMPTYING [None]
  - INFECTION [None]
  - MULTIPLE INJURIES [None]
  - PAIN [None]
  - PLATELET COUNT DECREASED [None]
  - RENAL FAILURE [None]
  - RESPIRATORY FAILURE [None]
  - RESPIRATORY PARALYSIS [None]
  - VOCAL CORD PARALYSIS [None]
